FAERS Safety Report 7605710-0 (Version None)
Quarter: 2011Q3

REPORT INFORMATION
  Report Type: 
  Country: None (occurrence: None)
  Receive Date: 20110713
  Receipt Date: 20110707
  Transmission Date: 20111222
  Serious: Yes (Hospitalization)
  Sender: FDA-Public Use
  Company Number: US-PFIZER INC-2011153626

PATIENT
  Sex: Male
  Weight: 87.982 kg

DRUGS (3)
  1. CAVERJECT [Suspect]
     Indication: ERECTILE DYSFUNCTION
     Dosage: 40 MCG, AS NEEDED
     Dates: start: 20100901, end: 20100901
  2. MULTI-VITAMINS [Concomitant]
     Indication: HYPOVITAMINOSIS
     Dosage: UNK
  3. HUMALOG [Concomitant]
     Indication: DIABETES MELLITUS
     Dosage: UNK

REACTIONS (3)
  - ATRIAL FIBRILLATION [None]
  - RENAL FAILURE [None]
  - PNEUMONIA [None]
